FAERS Safety Report 24151739 (Version 1)
Quarter: 2024Q3

REPORT INFORMATION
  Report Type: Spontaneous
  Country: US (occurrence: None)
  Receive Date: 20240729
  Receipt Date: 20240729
  Transmission Date: 20241017
  Serious: No
  Sender: Public
  Company Number: None

PATIENT
  Age: 54 Year
  Sex: Female
  Weight: 101.25 kg

DRUGS (1)
  1. LEVOTHYROXINE [Suspect]
     Active Substance: LEVOTHYROXINE\LEVOTHYROXINE SODIUM
     Indication: Hypothyroidism
     Dosage: FREQUENCY : TWICE A DAY;?
     Route: 048

REACTIONS (2)
  - Rash [None]
  - Rash erythematous [None]

NARRATIVE: CASE EVENT DATE: 20240501
